FAERS Safety Report 7106363-0 (Version None)
Quarter: 2010Q4

REPORT INFORMATION
  Report Type: 
  Country: None (occurrence: None)
  Receive Date: 20101116
  Receipt Date: 20100506
  Transmission Date: 20110411
  Serious: No
  Sender: FDA-Public Use
  Company Number: US-PFIZER INC-2010058072

PATIENT
  Sex: Female

DRUGS (2)
  1. TOVIAZ [Suspect]
     Dosage: 8 MG, UNK
  2. OXYBUTYNIN [Suspect]
     Dosage: 5 MG, UNK

REACTIONS (1)
  - DRY MOUTH [None]
